FAERS Safety Report 9540106 (Version 1)
Quarter: 2013Q2

REPORT INFORMATION
  Report Type: Spontaneous
  Country: US (occurrence: None)
  Receive Date: 20130521
  Receipt Date: 20130521
  Transmission Date: 20140414
  Serious: Yes (Other)
  Sender: FDA-Public Use
  Company Number: 1000044376

PATIENT
  Age: 93 Year
  Sex: Female

DRUGS (3)
  1. TUDORZA PRESSAIR [Suspect]
     Indication: CHRONIC OBSTRUCTIVE PULMONARY DISEASE
     Dosage: 800 MCG (400 MCG,2 IN 1 D),RESPIRATORY (INHALATION)
  2. OMEPRAZOLE (OMEPRAZOLE) (OMEPRAZOLE) [Concomitant]
  3. FUROSEMIDE (FUROSEMIDE)(FUROSEMIDE) [Concomitant]

REACTIONS (3)
  - Headache [None]
  - Cough [None]
  - Somnolence [None]
